FAERS Safety Report 13168236 (Version 2)
Quarter: 2017Q1

REPORT INFORMATION
  Report Type: Spontaneous
  Country: US (occurrence: US)
  Receive Date: 20170131
  Receipt Date: 20170309
  Transmission Date: 20170428
  Serious: Yes (Other)
  Sender: FDA-Public Use
  Company Number: US-BAYER-2017-018305

PATIENT
  Age: 21 Year
  Sex: Female
  Weight: 52.61 kg

DRUGS (1)
  1. MIRENA [Suspect]
     Active Substance: LEVONORGESTREL
     Indication: CONTRACEPTION
     Dosage: 20 MCG/24HR, CONT
     Route: 015
     Dates: start: 20160330, end: 20161130

REACTIONS (7)
  - Menometrorrhagia [None]
  - Post procedural haemorrhage [Recovered/Resolved]
  - Device dislocation [None]
  - Vaginal haemorrhage [None]
  - Pelvic pain [None]
  - Abdominal pain lower [None]
  - Amenorrhoea [None]

NARRATIVE: CASE EVENT DATE: 20160330
